FAERS Safety Report 5858805-6 (Version None)
Quarter: 2008Q3

REPORT INFORMATION
  Report Type: 
  Country: None (occurrence: None)
  Receive Date: 20080825
  Receipt Date: 20080811
  Transmission Date: 20090109
  Serious: Yes (Death, Life-Threatening, Hospitalization, Other)
  Sender: FDA-Public Use
  Company Number: CLOF-10604

PATIENT
  Age: 80 Year
  Sex: Male
  Weight: 131.1 kg

DRUGS (20)
  1. CLOFARABINE AND/OR ARA-C (CODE NOT BROKEN) SOLUTION FOR INFUSION [Suspect]
     Indication: ACUTE MYELOID LEUKAEMIA
     Dosage: BLINDED INFORMATION WITHHELD
     Dates: start: 20070702, end: 20070706
  2. CYTARABINE [Suspect]
     Indication: ACUTE MYELOID LEUKAEMIA
     Dosage: 1000 MG/M2, QDX5, INTRAVENOUS
     Route: 042
     Dates: start: 20070702, end: 20070706
  3. ALBUTEROL [Concomitant]
  4. SPIRIVA [Concomitant]
  5. NABUMETONE [Concomitant]
  6. NOVOLIN (INSULIN) [Concomitant]
  7. HYDROMORPHONE HCL [Concomitant]
  8. ADVAIR DISKUS 100/50 [Concomitant]
  9. INSULIN (INSULIN HUMAN) [Concomitant]
  10. TYLENOL (CHLORPHENAMINE MALEATE, DEXTROMETHORPHAN HYDROBROMIDE) [Concomitant]
  11. ZOFRAN [Concomitant]
  12. PROTONIX (OANTOPRAZOLE SODIUM) [Concomitant]
  13. DILAUDID [Concomitant]
  14. CEFEPIME [Concomitant]
  15. TIOTROPIUM (TIOTROPIUM) [Concomitant]
  16. FLUCONAZOLE [Concomitant]
  17. ALLOPURINOL [Concomitant]
  18. MARINOL [Concomitant]
  19. COMPAZINE [Concomitant]
  20. ATIVAN [Concomitant]

REACTIONS (26)
  - ATELECTASIS [None]
  - BACTERIAL INFECTION [None]
  - BLOOD PRESSURE DIASTOLIC DECREASED [None]
  - CHRONIC OBSTRUCTIVE PULMONARY DISEASE [None]
  - DIARRHOEA [None]
  - ENTEROCOCCAL INFECTION [None]
  - GASTROINTESTINAL HAEMORRHAGE [None]
  - GASTROINTESTINAL TELANGIECTASIA [None]
  - HAEMOPTYSIS [None]
  - HEADACHE [None]
  - MICROCOCCUS INFECTION [None]
  - MUSCULOSKELETAL PAIN [None]
  - OEDEMA PERIPHERAL [None]
  - PALMAR-PLANTAR ERYTHRODYSAESTHESIA SYNDROME [None]
  - PITTING OEDEMA [None]
  - PNEUMONIA [None]
  - PROTHROMBIN TIME PROLONGED [None]
  - PULMONARY ALVEOLAR HAEMORRHAGE [None]
  - PULMONARY HAEMORRHAGE [None]
  - RASH [None]
  - RESPIRATORY DISTRESS [None]
  - SEPSIS [None]
  - STAPHYLOCOCCAL INFECTION [None]
  - STENOTROPHOMONAS INFECTION [None]
  - TACHYCARDIA [None]
  - THROMBOCYTOPENIA [None]
